FAERS Safety Report 9282642 (Version 3)
Quarter: 2013Q3

REPORT INFORMATION
  Report Type: Spontaneous
  Country: IT (occurrence: IT)
  Receive Date: 20130510
  Receipt Date: 20130711
  Transmission Date: 20140515
  Serious: Yes (Other)
  Sender: FDA-Public Use
  Company Number: IT-BRISTOL-MYERS SQUIBB COMPANY-18848275

PATIENT
  Age: 69 Year
  Sex: Male
  Weight: 82 kg

DRUGS (2)
  1. COUMADIN TABS 5 MG [Suspect]
     Indication: VENOUS THROMBOSIS
     Dosage: 1 DF : 1 UNIT NOS.
     Route: 048
     Dates: start: 2011, end: 20110618
  2. MODURETIC TABS 5MG/50MG [Concomitant]

REACTIONS (4)
  - Shock [Recovered/Resolved]
  - Dyspnoea [Recovered/Resolved]
  - Malaise [Recovered/Resolved]
  - Hyperhidrosis [Recovered/Resolved]
